FAERS Safety Report 20734286 (Version 1)
Quarter: 2022Q2

REPORT INFORMATION
  Report Type: Spontaneous
  Country: US (occurrence: None)
  Receive Date: 20220420
  Receipt Date: 20220420
  Transmission Date: 20220720
  Serious: Yes (Other)
  Sender: FDA-Public Use
  Company Number: None

PATIENT
  Age: 71 Year
  Sex: Female
  Weight: 74.84 kg

DRUGS (9)
  1. CAPECITABINE [Suspect]
     Active Substance: CAPECITABINE
     Indication: Colon cancer
     Dosage: FREQUENCY : TWICE A DAY;?
     Route: 048
  2. FERROUS SULFATE [Concomitant]
  3. LEXAPRO [Concomitant]
  4. MULTIVITAMIN [Concomitant]
  5. PROTONIX [Concomitant]
  6. PROBIOTIC [Concomitant]
  7. TUMERIC [Concomitant]
  8. VITAMIN C [Concomitant]
  9. POTASSIUM [Concomitant]

REACTIONS (3)
  - Palmar-plantar erythrodysaesthesia syndrome [None]
  - Hypoaesthesia [None]
  - Therapy interrupted [None]
